FAERS Safety Report 5153396-X (Version None)
Quarter: 2006Q4

REPORT INFORMATION
  Report Type: 
  Country: None (occurrence: None)
  Receive Date: 20061110
  Receipt Date: 20061102
  Transmission Date: 20070319
  Serious: Yes (Other)
  Sender: FDA-Public Use
  Company Number: HQWYE206117OCT06

PATIENT
  Age: 29 Year
  Sex: Female

DRUGS (2)
  1. LEVONORGESTREL + ETHINYL ESTRADIOL [Suspect]
     Indication: ORAL CONTRACEPTION
     Dosage: 1 TABLET 1X PER 1 DAY; ORAL
     Route: 048
     Dates: start: 20060601
  2. DIETHYLPROPION HYDROCHLORIDE (AMFEPRAMONE HYDROCHLORIDE) [Concomitant]

REACTIONS (2)
  - BREAST COSMETIC SURGERY [None]
  - INAPPROPRIATE SCHEDULE OF DRUG ADMINISTRATION [None]
